FAERS Safety Report 16627536 (Version 2)
Quarter: 2019Q3

REPORT INFORMATION
  Report Type: Spontaneous
  Country: JP (occurrence: JP)
  Receive Date: 20190724
  Receipt Date: 20190906
  Transmission Date: 20191004
  Serious: Yes (Death, Other)
  Sender: FDA-Public Use
  Company Number: JP-BRISTOL-MYERS SQUIBB COMPANY-BMS-2019-072442

PATIENT
  Age: 77 Year
  Sex: Male
  Weight: 49 kg

DRUGS (1)
  1. OPDIVO [Suspect]
     Active Substance: NIVOLUMAB
     Indication: GASTRIC CANCER
     Dosage: 120 MG
     Route: 041
     Dates: start: 201803, end: 201906

REACTIONS (2)
  - Pneumonia aspiration [Fatal]
  - Prescribed underdose [Unknown]

NARRATIVE: CASE EVENT DATE: 2019
